FAERS Safety Report 22045240 (Version 1)
Quarter: 2023Q1

REPORT INFORMATION
  Report Type: Spontaneous
  Country: US (occurrence: None)
  Receive Date: 20230227
  Receipt Date: 20230227
  Transmission Date: 20230417
  Serious: Yes (Other)
  Sender: FDA-Public Use
  Company Number: None

PATIENT
  Age: 72 Year
  Sex: Female
  Weight: 63 kg

DRUGS (1)
  1. PROLIA [Suspect]
     Active Substance: DENOSUMAB
     Indication: Osteoporosis
     Dosage: OTHER FREQUENCY : EVERY 6 MONTHS;?
     Route: 058
     Dates: start: 20220124, end: 20230227

REACTIONS (5)
  - Dizziness [None]
  - Chest discomfort [None]
  - Myalgia [None]
  - Arthralgia [None]
  - Urinary tract infection [None]

NARRATIVE: CASE EVENT DATE: 20230210
